FAERS Safety Report 8469323-3 (Version None)
Quarter: 2012Q2

REPORT INFORMATION
  Report Type: 
  Country: None (occurrence: None)
  Receive Date: 20120620
  Receipt Date: 20120618
  Transmission Date: 20120825
  Serious: Yes (Hospitalization, Other)
  Sender: FDA-Public Use
  Company Number: ADR-2011-10463

PATIENT
  Age: 20 Year
  Sex: Male

DRUGS (1)
  1. BACLOFEN [Suspect]
     Dosage: MCG, DAILY, INTRATH
     Route: 037

REACTIONS (4)
  - WOUND SECRETION [None]
  - INFECTION [None]
  - PURULENCE [None]
  - C-REACTIVE PROTEIN INCREASED [None]
